FAERS Safety Report 7774913-7 (Version None)
Quarter: 2011Q3

REPORT INFORMATION
  Report Type: 
  Country: None (occurrence: None)
  Receive Date: 20110923
  Receipt Date: 20110916
  Transmission Date: 20111222
  Serious: Yes (Other)
  Sender: FDA-Public Use
  Company Number: GB-PFIZER INC-2011217149

PATIENT
  Age: 48 Year
  Sex: Male

DRUGS (2)
  1. CITALOPRAM [Suspect]
     Route: 065
  2. SERTRALINE HYDROCHLORIDE [Suspect]
     Route: 065

REACTIONS (11)
  - POOR PERSONAL HYGIENE [None]
  - CONFUSIONAL STATE [None]
  - SLEEP DISORDER [None]
  - DECREASED INTEREST [None]
  - DISORIENTATION [None]
  - LIBIDO DISORDER [None]
  - DRUG INEFFECTIVE [None]
  - ANGER [None]
  - ANXIETY [None]
  - MUSCLE SPASMS [None]
  - AGGRESSION [None]
